FAERS Safety Report 16564301 (Version 1)
Quarter: 2019Q3

REPORT INFORMATION
  Report Type: Report from Study
  Country: JP (occurrence: JP)
  Receive Date: 20190712
  Receipt Date: 20190712
  Transmission Date: 20191004
  Serious: No
  Sender: FDA-Public Use
  Company Number: JP-BEH-2019104135

PATIENT
  Age: 2 Year
  Sex: Male
  Weight: 10.3 kg

DRUGS (24)
  1. IDELVION [Suspect]
     Active Substance: COAGULATION FACTOR IX RECOMBINANT HUMAN
     Dosage: 500 INTERNATIONAL UNIT, TOT
     Route: 042
     Dates: start: 20181212, end: 20181212
  2. XYZAL [Concomitant]
     Active Substance: LEVOCETIRIZINE DIHYDROCHLORIDE
     Indication: DERMATITIS ATOPIC
     Route: 048
  3. MEPTIN [Concomitant]
     Active Substance: PROCATEROL HYDROCHLORIDE
     Dosage: UNK
     Route: 048
     Dates: start: 20181128, end: 20181212
  4. IDELVION [Suspect]
     Active Substance: COAGULATION FACTOR IX RECOMBINANT HUMAN
     Indication: PROPHYLAXIS
     Dosage: 500 INTERNATIONAL UNIT, QOW
     Route: 042
     Dates: start: 20180918, end: 20180926
  5. IDELVION [Suspect]
     Active Substance: COAGULATION FACTOR IX RECOMBINANT HUMAN
     Dosage: 500 INTERNATIONAL UNIT, TOT
     Route: 042
     Dates: start: 20181212, end: 20181212
  6. PASETOCIN [AMOXICILLIN TRIHYDRATE] [Concomitant]
     Dosage: UNK
     Route: 048
     Dates: start: 20180918, end: 20180925
  7. MUCOSAL [AMBROXOL HYDROCHLORIDE] [Concomitant]
     Dosage: UNK
     Route: 048
     Dates: start: 20181128, end: 20181212
  8. IDELVION [Suspect]
     Active Substance: COAGULATION FACTOR IX RECOMBINANT HUMAN
     Dosage: 500 INTERNATIONAL UNIT, QOW
     Route: 042
     Dates: start: 20181005, end: 20181031
  9. HYDROPHILIC [Concomitant]
     Indication: DERMATITIS ATOPIC
     Route: 065
  10. L-CARBOCYSTEINE [Concomitant]
     Active Substance: CARBOCYSTEINE
     Dosage: UNK
     Route: 048
     Dates: start: 20181212, end: 20181219
  11. IDELVION [Suspect]
     Active Substance: COAGULATION FACTOR IX RECOMBINANT HUMAN
     Indication: PROPHYLAXIS
     Dosage: 500 INTERNATIONAL UNIT, QOW
     Route: 042
     Dates: start: 20180918, end: 20180926
  12. IDELVION [Suspect]
     Active Substance: COAGULATION FACTOR IX RECOMBINANT HUMAN
     Dosage: 500 INTERNATIONAL UNIT, QOW
     Route: 042
     Dates: start: 20181114, end: 20181128
  13. LIFOROS [Concomitant]
     Active Substance: LACTULOSE
     Indication: CONSTIPATION
     Dosage: UNK
     Route: 048
     Dates: start: 20180903
  14. ZINC OXIDE. [Concomitant]
     Active Substance: ZINC OXIDE
     Indication: DERMATITIS DIAPER
     Route: 065
  15. IDELVION [Suspect]
     Active Substance: COAGULATION FACTOR IX RECOMBINANT HUMAN
     Dosage: 500 INTERNATIONAL UNIT, QOW
     Route: 042
     Dates: start: 20181226, end: 20190626
  16. IDELVION [Suspect]
     Active Substance: COAGULATION FACTOR IX RECOMBINANT HUMAN
     Dosage: 500 INTERNATIONAL UNIT, QOW
     Route: 042
     Dates: start: 20181114, end: 20181128
  17. IDELVION [Suspect]
     Active Substance: COAGULATION FACTOR IX RECOMBINANT HUMAN
     Dosage: 500 INTERNATIONAL UNIT, QOW
     Route: 042
     Dates: start: 20181226, end: 20190626
  18. L-CARBOCYSTEINE [Concomitant]
     Active Substance: CARBOCYSTEINE
     Dosage: UNK
     Route: 048
     Dates: start: 20181128, end: 20181212
  19. IDELVION [Suspect]
     Active Substance: COAGULATION FACTOR IX RECOMBINANT HUMAN
     Indication: FACTOR IX DEFICIENCY
     Dosage: 500 INTERNATIONAL UNIT, TOT
     Route: 042
     Dates: start: 20180903, end: 20180903
  20. IDELVION [Suspect]
     Active Substance: COAGULATION FACTOR IX RECOMBINANT HUMAN
     Dosage: 500 INTERNATIONAL UNIT, QOW
     Route: 042
     Dates: start: 20181005, end: 20181031
  21. IDELVION [Suspect]
     Active Substance: COAGULATION FACTOR IX RECOMBINANT HUMAN
     Indication: FACTOR IX DEFICIENCY
     Dosage: 500 INTERNATIONAL UNIT, TOT
     Route: 042
     Dates: start: 20180903, end: 20180903
  22. KINDAVATE [Concomitant]
     Active Substance: CLOBETASONE BUTYRATE
     Indication: DERMATITIS ATOPIC
     Route: 065
  23. PASETOCIN [AMOXICILLIN TRIHYDRATE] [Concomitant]
     Dosage: UNK
     Route: 048
     Dates: start: 20181212, end: 20181219
  24. L-CARBOCYSTEINE [Concomitant]
     Active Substance: CARBOCYSTEINE
     Dosage: UNK
     Route: 048
     Dates: start: 20180918, end: 20180925

REACTIONS (3)
  - Miliaria [Recovering/Resolving]
  - Bronchitis [Recovered/Resolved]
  - Pharyngitis [Recovered/Resolved]

NARRATIVE: CASE EVENT DATE: 20180917
